FAERS Safety Report 21065202 (Version 2)
Quarter: 2022Q3

REPORT INFORMATION
  Report Type: Spontaneous
  Country: JP (occurrence: JP)
  Receive Date: 20220711
  Receipt Date: 20220729
  Transmission Date: 20221026
  Serious: Yes (Hospitalization, Other)
  Sender: FDA-Public Use
  Company Number: JP-GLAXOSMITHKLINE-JP2022JPN101898

PATIENT

DRUGS (2)
  1. ZOVIRAX [Suspect]
     Active Substance: ACYCLOVIR
     Indication: Herpes zoster
     Dosage: 800 MG/DAY
  2. VALTREX [Suspect]
     Active Substance: VALACYCLOVIR HYDROCHLORIDE
     Indication: Herpes zoster
     Dosage: 500 MG/DAY

REACTIONS (3)
  - Toxic encephalopathy [Unknown]
  - Altered state of consciousness [Recovered/Resolved]
  - Herpes zoster meningoencephalitis [Unknown]
